FAERS Safety Report 7276725-X (Version None)
Quarter: 2011Q1

REPORT INFORMATION
  Report Type: 
  Country: None (occurrence: None)
  Receive Date: 20110204
  Receipt Date: 20110126
  Transmission Date: 20110831
  Serious: Yes (Hospitalization)
  Sender: FDA-Public Use
  Company Number: US-ASTRAZENECA-2009UW05395

PATIENT
  Age: 69 Year
  Sex: Female
  Weight: 68 kg

DRUGS (3)
  1. PRILOSEC OTC [Suspect]
     Route: 048
  2. ELAVIL [Concomitant]
  3. PRILOSEC [Suspect]
     Route: 048

REACTIONS (2)
  - HOSPITALISATION [None]
  - DRUG DOSE OMISSION [None]
